FAERS Safety Report 6554705-7 (Version None)
Quarter: 2010Q1

REPORT INFORMATION
  Report Type: 
  Country: None (occurrence: None)
  Receive Date: 20100127
  Receipt Date: 20100118
  Transmission Date: 20100710
  Serious: Yes (Hospitalization)
  Sender: FDA-Public Use
  Company Number: US-JNJFOC-20100108013

PATIENT
  Sex: Female
  Weight: 49.9 kg

DRUGS (6)
  1. DURAGESIC-100 [Suspect]
     Indication: FIBROMYALGIA
     Route: 062
  2. DURAGESIC-100 [Suspect]
     Indication: MIGRAINE
     Route: 062
  3. DURAGESIC-100 [Suspect]
     Route: 062
  4. DURAGESIC-100 [Suspect]
     Route: 062
  5. TREXIMET [Concomitant]
     Indication: MIGRAINE
     Route: 048
  6. PERCOCET [Concomitant]
     Indication: PAIN
     Route: 048

REACTIONS (3)
  - BACK DISORDER [None]
  - THERAPEUTIC RESPONSE DECREASED [None]
  - WRONG TECHNIQUE IN DRUG USAGE PROCESS [None]
